FAERS Safety Report 23501477 (Version 1)
Quarter: 2024Q1

REPORT INFORMATION
  Report Type: Spontaneous
  Country: CN (occurrence: CN)
  Receive Date: 20240208
  Receipt Date: 20240208
  Transmission Date: 20240410
  Serious: Yes (Other)
  Sender: FDA-Public Use
  Company Number: CN-BRISTOL-MYERS SQUIBB COMPANY-2024-019769

PATIENT
  Age: 66 Year
  Sex: Male
  Weight: 57.3 kg

DRUGS (1)
  1. VIDAZA [Suspect]
     Active Substance: AZACITIDINE
     Indication: Chronic myelomonocytic leukaemia
     Dosage: DOSE: 120 MG, FREQ: QD, DOSES RECEIVED: 1 AND NUMBER OF DAYS USING THE DRUG: 1
     Route: 058
     Dates: start: 20240109, end: 20240112

REACTIONS (1)
  - Myelosuppression [Recovering/Resolving]

NARRATIVE: CASE EVENT DATE: 20240114
